FAERS Safety Report 4601653-5 (Version None)
Quarter: 2005Q1

REPORT INFORMATION
  Report Type: 
  Country: None (occurrence: None)
  Receive Date: 20050131
  Receipt Date: 20041108
  Transmission Date: 20050727
  Serious: Yes (Other)
  Sender: FDA-Public Use
  Company Number: 200418182US

PATIENT
  Age: 35 Year
  Sex: Female

DRUGS (4)
  1. TELITHROMYCIN (KETEK) TABLETS [Suspect]
     Indication: SINUSITIS
     Dosage: 800 MG QD PO
     Route: 048
     Dates: start: 20041021, end: 20041021
  2. TYLENOL [Concomitant]
  3. ASPIRIN [Concomitant]
  4. VITAMIN C [Concomitant]

REACTIONS (2)
  - DIZZINESS [None]
  - VISION BLURRED [None]
